FAERS Safety Report 7968189-5 (Version None)
Quarter: 2011Q4

REPORT INFORMATION
  Report Type: 
  Country: None (occurrence: None)
  Receive Date: 20111209
  Receipt Date: 20111202
  Transmission Date: 20120403
  Serious: Yes (Other)
  Sender: FDA-Public Use
  Company Number: PHHY2011US32350

PATIENT
  Sex: Female
  Weight: 62.585 kg

DRUGS (6)
  1. AMBIEN CR [Concomitant]
     Dosage: 12.5 MG, QHS
  2. GILENYA [Suspect]
     Indication: MULTIPLE SCLEROSIS
     Dosage: 0.5 MG, QD
     Route: 048
     Dates: start: 20110411
  3. CYMBALTA [Concomitant]
     Dosage: 30 MG, QD
     Dates: start: 20090101
  4. KEPPRA [Concomitant]
     Dosage: 250 MG, QD
     Dates: start: 20090101
  5. LIMBITROL [Concomitant]
     Dosage: 5/12.5 MG 2 AT NIGHT
     Dates: start: 20070101
  6. NAMENDA [Concomitant]
     Dosage: 5 MG, BID
     Dates: start: 20090101

REACTIONS (7)
  - FATIGUE [None]
  - DIZZINESS [None]
  - BLINDNESS [None]
  - FLATULENCE [None]
  - INSOMNIA [None]
  - NAUSEA [None]
  - VISION BLURRED [None]
